FAERS Safety Report 8880634 (Version 3)
Quarter: 2013Q1

REPORT INFORMATION
  Report Type: Report from Study
  Country: AU (occurrence: AU)
  Receive Date: 20121031
  Receipt Date: 20130311
  Transmission Date: 20140127
  Serious: Yes (Other)
  Sender: FDA-Public Use
  Company Number: AU-ROCHE-1149974

PATIENT
  Age: 51 Year
  Sex: Male
  Weight: 69 kg

DRUGS (5)
  1. PEGASYS [Suspect]
     Indication: HEPATITIS C
     Dosage: STOPPED AT WEEK 14
     Route: 058
  2. RIBAVIRIN [Suspect]
     Indication: HEPATITIS C
     Dosage: STOPPED AT WEEK 14
     Route: 048
  3. BOCEPREVIR [Suspect]
     Indication: HEPATITIS C
     Route: 048
  4. CITALOPRAM [Concomitant]
     Indication: DEPRESSION
     Dosage: STARTED ON WEEK 8
     Route: 065
  5. SUBOXONE [Concomitant]
     Route: 065
     Dates: start: 2008

REACTIONS (2)
  - Depression [Not Recovered/Not Resolved]
  - Virologic failure [Not Recovered/Not Resolved]
